FAERS Safety Report 15418357 (Version 2)
Quarter: 2018Q4

REPORT INFORMATION
  Report Type: Spontaneous
  Country: GB (occurrence: GB)
  Receive Date: 20180924
  Receipt Date: 20181004
  Transmission Date: 20190204
  Serious: Yes (Other)
  Sender: FDA-Public Use
  Company Number: GB-PFIZER INC-2018380528

PATIENT
  Age: 36 Year
  Sex: Female

DRUGS (4)
  1. SERTRALINE HCL [Suspect]
     Active Substance: SERTRALINE HYDROCHLORIDE
     Dosage: 25 MG, UNK
  2. SERTRALINE [Suspect]
     Active Substance: SERTRALINE HYDROCHLORIDE
     Dosage: 25 MG, UNK
  3. SERTRALINE HCL [Suspect]
     Active Substance: SERTRALINE HYDROCHLORIDE
     Dosage: 2 MG, UNK
  4. SERTRALINE HCL [Suspect]
     Active Substance: SERTRALINE HYDROCHLORIDE
     Dosage: 50 MG, UNK

REACTIONS (10)
  - Mania [Unknown]
  - Insomnia [Unknown]
  - Depression [Unknown]
  - Withdrawal syndrome [Unknown]
  - Parkinson^s disease [Unknown]
  - Suicidal ideation [Unknown]
  - Muscle spasms [Unknown]
  - Arthralgia [Unknown]
  - Nausea [Unknown]
  - Anxiety [Unknown]
